FAERS Safety Report 12626611 (Version 1)
Quarter: 2016Q3

REPORT INFORMATION
  Report Type: Spontaneous
  Country: JP (occurrence: JP)
  Receive Date: 20160805
  Receipt Date: 20160805
  Transmission Date: 20161109
  Serious: Yes (Other)
  Sender: FDA-Public Use
  Company Number: JP-PFIZER INC-2016166544

PATIENT
  Age: 19 Year
  Sex: Female
  Weight: 20 kg

DRUGS (6)
  1. CEFTRIAXONE SODIUM. [Suspect]
     Active Substance: CEFTRIAXONE SODIUM
     Indication: CELLULITIS
     Dosage: 2 G, DAILY
  2. CEFTRIAXONE SODIUM. [Suspect]
     Active Substance: CEFTRIAXONE SODIUM
     Dosage: 2 G, DAILY
  3. CEFTRIAXONE SODIUM. [Suspect]
     Active Substance: CEFTRIAXONE SODIUM
     Indication: HYDRONEPHROSIS
     Dosage: 2 G, DAILY
  4. CEFTRIAXONE SODIUM. [Suspect]
     Active Substance: CEFTRIAXONE SODIUM
     Indication: RENAL FAILURE
     Dosage: 2 G, DAILY
  5. CEFTRIAXONE SODIUM. [Suspect]
     Active Substance: CEFTRIAXONE SODIUM
     Indication: URINARY TRACT INFECTION
     Dosage: 1 G, DAILY
  6. CEFTRIAXONE SODIUM. [Suspect]
     Active Substance: CEFTRIAXONE SODIUM
     Dosage: 2 G, DAILY

REACTIONS (4)
  - Hepatic enzyme increased [Recovered/Resolved]
  - Nephrolithiasis [Unknown]
  - Condition aggravated [Unknown]
  - Cholelithiasis [Recovered/Resolved]
